FAERS Safety Report 22668395 (Version 2)
Quarter: 2024Q1

REPORT INFORMATION
  Report Type: Spontaneous
  Country: DE (occurrence: DE)
  Receive Date: 20230704
  Receipt Date: 20240111
  Transmission Date: 20240410
  Serious: Yes (Other)
  Sender: FDA-Public Use
  Company Number: None

PATIENT
  Age: 36 Year
  Sex: Male

DRUGS (6)
  1. INFLIXIMAB [Suspect]
     Active Substance: INFLIXIMAB
     Indication: Colitis ulcerative
     Dosage: 5 MG/KG (A TOTAL OF 3 DOSES WERE GIVEN, EACH 5 MG/KG BODY WEIGHT IV PREPARED IN 250 M NACL 0.9% AT T
     Route: 042
     Dates: start: 20221027
  2. INFLIXIMAB [Suspect]
     Active Substance: INFLIXIMAB
     Dosage: 5 MG/KG (A TOTAL OF 3 DOSES WERE GIVEN, EACH 5 MG/KG BODY WEIGHT IV PREPARED IN 250 M NACL 0.9% AT T
     Route: 042
     Dates: start: 20221111
  3. INFLIXIMAB [Suspect]
     Active Substance: INFLIXIMAB
     Dosage: 5 MG/KG (A TOTAL OF 3 DOSES WERE GIVEN, EACH 5 MG/KG BODY WEIGHT IV PREPARED IN 250 M NACL 0.9% AT T
     Route: 042
     Dates: start: 20221206
  4. INFLIXIMAB [Suspect]
     Active Substance: INFLIXIMAB
     Route: 042
  5. SODIUM CHLORIDE [Concomitant]
     Active Substance: SODIUM CHLORIDE
     Indication: Product used for unknown indication
     Dosage: 250 M;
     Route: 065
  6. MESALAMINE [Concomitant]
     Active Substance: MESALAMINE
     Indication: Product used for unknown indication
     Dosage: 3 G (1-0-0); GRANULE;
     Route: 065

REACTIONS (2)
  - Pancytopenia [Unknown]
  - Bone marrow failure [Unknown]
